FAERS Safety Report 21999451 (Version 1)
Quarter: 2023Q1

REPORT INFORMATION
  Report Type: Other
  Country: US (occurrence: None)
  Receive Date: 20230216
  Receipt Date: 20230216
  Transmission Date: 20230417
  Serious: Yes (Hospitalization)
  Sender: FDA-Public Use
  Company Number: US-ROCHE-3283893

PATIENT
  Age: 54 Year
  Sex: Female
  Weight: 52.6 kg

DRUGS (1)
  1. EVRYSDI [Suspect]
     Active Substance: RISDIPLAM
     Indication: Spinal muscular atrophy
     Dosage: 0.75 MG/ML 80 ML (IN 100 ML)?EXPECTED TREATMENT START DATE 15/AUG/2022
     Route: 048
     Dates: start: 20220809

REACTIONS (1)
  - Constipation [Recovered/Resolved]

NARRATIVE: CASE EVENT DATE: 20230130
